FAERS Safety Report 6795321-1 (Version None)
Quarter: 2010Q2

REPORT INFORMATION
  Report Type: 
  Country: None (occurrence: None)
  Receive Date: 20100625
  Receipt Date: 20100622
  Transmission Date: 20101027
  Serious: Yes (Other)
  Sender: FDA-Public Use
  Company Number: US-ELI_LILLY_AND_COMPANY-US201006006151

PATIENT
  Sex: Female

DRUGS (1)
  1. HUMALOG [Suspect]
     Indication: TYPE 1 DIABETES MELLITUS
     Dosage: 25 U, OTHER

REACTIONS (2)
  - BLOOD GLUCOSE INCREASED [None]
  - DRUG DOSE OMISSION [None]
